FAERS Safety Report 16393660 (Version 6)
Quarter: 2020Q1

REPORT INFORMATION
  Report Type: Spontaneous
  Country: US (occurrence: US)
  Receive Date: 20190605
  Receipt Date: 20200214
  Transmission Date: 20200409
  Serious: No
  Sender: FDA-Public Use
  Company Number: US-PFIZER INC-2019234286

PATIENT
  Age: 71 Year
  Sex: Female
  Weight: 48 kg

DRUGS (5)
  1. FOSAMAX [Concomitant]
     Active Substance: ALENDRONATE SODIUM
     Dosage: 70 MG, UNK
  2. VFEND [Suspect]
     Active Substance: VORICONAZOLE
     Indication: FUNGAL INFECTION
     Dosage: 400 MG, 2X/DAY (TAKE 2 TABLETS 2 TIMES DAILY)
     Route: 048
  3. VFEND [Suspect]
     Active Substance: VORICONAZOLE
     Indication: ASPERGILLUS INFECTION
     Dosage: 600 MG, DAILY (ONE AM, TWO PM)/(200 MG IN THE MORNING 400 AT THE NIGHT)
     Route: 048
     Dates: start: 201901
  4. VFEND [Suspect]
     Active Substance: VORICONAZOLE
     Indication: ASPERGILLUS INFECTION
     Dosage: 300 MG, DAILY (100 MG IN THE MORNING AND 200 MG IN THE EVENING)
  5. VFEND [Suspect]
     Active Substance: VORICONAZOLE
     Indication: SCEDOSPORIUM INFECTION
     Dosage: 200 MG, 2X/DAY (200 MG IN THE MORNING AND 200 MG IN THE EVENING )

REACTIONS (5)
  - Off label use [Unknown]
  - Drug level abnormal [Unknown]
  - Drug level decreased [Unknown]
  - Drug level increased [Unknown]
  - Product use issue [Unknown]

NARRATIVE: CASE EVENT DATE: 20191227
